FAERS Safety Report 4492395-8 (Version None)
Quarter: 2004Q4

REPORT INFORMATION
  Report Type: 
  Country: None (occurrence: None)
  Receive Date: 20041102
  Receipt Date: 20041102
  Transmission Date: 20050328
  Serious: Yes (Death)
  Sender: FDA-Public Use
  Company Number: None

PATIENT
  Age: 76 Year
  Sex: Male
  Weight: 94.3482 kg

DRUGS (2)
  1. DOCETAXEL [Suspect]
     Indication: PROSTATE CANCER
     Dosage: 64 MG IV Q WEEK X 3 THEN 1 OFF LAST 10/20
     Route: 042
     Dates: end: 20041020
  2. CELECOXIB [Suspect]
     Dosage: 400 MG PO BID

REACTIONS (2)
  - COMA [None]
  - SUDDEN CARDIAC DEATH [None]
